FAERS Safety Report 5228595-9 (Version None)
Quarter: 2007Q1

REPORT INFORMATION
  Report Type: 
  Country: None (occurrence: None)
  Receive Date: 20070205
  Receipt Date: 20070123
  Transmission Date: 20070707
  Serious: Yes (Hospitalization, Other)
  Sender: FDA-Public Use
  Company Number: US-AMGEN-US208182

PATIENT
  Sex: Male

DRUGS (3)
  1. ENBREL [Suspect]
     Indication: RHEUMATOID ARTHRITIS
     Route: 058
     Dates: start: 20060801
  2. ENBREL [Suspect]
     Indication: ANKYLOSING SPONDYLITIS
  3. UNKNOWN [Concomitant]
     Route: 048
     Dates: start: 20060101

REACTIONS (2)
  - RHABDOMYOLYSIS [None]
  - RHEUMATOID ARTHRITIS [None]
